FAERS Safety Report 10159087 (Version 13)
Quarter: 2016Q2

REPORT INFORMATION
  Report Type: Report from Study
  Country: DE (occurrence: DE)
  Receive Date: 20140508
  Receipt Date: 20160426
  Transmission Date: 20160815
  Serious: Yes (Life-Threatening, Hospitalization, Other)
  Sender: FDA-Public Use
  Company Number: DE-ROCHE-1394500

PATIENT
  Age: 66 Year
  Sex: Female
  Weight: 90 kg

DRUGS (5)
  1. EPIRUBICIN [Suspect]
     Active Substance: EPIRUBICIN
     Indication: BREAST CANCER
     Dosage: CUMULATIVE DOSE 910.5 MG
     Route: 042
     Dates: start: 20140122, end: 20140219
  2. PACLITAXEL. [Suspect]
     Active Substance: PACLITAXEL
     Indication: BREAST CANCER
     Route: 042
     Dates: start: 20140305, end: 20140402
  3. TRASTUZUMAB [Suspect]
     Active Substance: TRASTUZUMAB
     Indication: BREAST CANCER
     Route: 058
     Dates: start: 20140304, end: 20140416
  4. CYCLOPHOSPHAMID [Suspect]
     Active Substance: CYCLOPHOSPHAMIDE
     Indication: BREAST CANCER
     Route: 042
     Dates: start: 20140416, end: 20140416
  5. TRASTUZUMAB [Suspect]
     Active Substance: TRASTUZUMAB
     Route: 058
     Dates: start: 20140911, end: 20140911

REACTIONS (20)
  - Acute respiratory failure [Recovered/Resolved]
  - Cardiac failure [Recovered/Resolved]
  - Atrial fibrillation [Unknown]
  - Pneumonia [Recovered/Resolved]
  - Acute respiratory distress syndrome [Recovered/Resolved]
  - Multi-organ disorder [Recovered/Resolved]
  - Paraesthesia [Not Recovered/Not Resolved]
  - Epistaxis [Recovered/Resolved]
  - Aortic valve incompetence [Not Recovered/Not Resolved]
  - General physical health deterioration [Recovered/Resolved]
  - Dyspnoea [Recovered/Resolved]
  - Mitral valve incompetence [Recovered/Resolved]
  - Sepsis [Recovered/Resolved]
  - Electrolyte imbalance [Recovered/Resolved]
  - Lacrimation increased [Not Recovered/Not Resolved]
  - Erythema [Recovered/Resolved]
  - Tachyarrhythmia [Recovered/Resolved]
  - Tricuspid valve incompetence [Recovered/Resolved]
  - Septic shock [Recovered/Resolved]
  - Dizziness [Not Recovered/Not Resolved]

NARRATIVE: CASE EVENT DATE: 20140304
